FAERS Safety Report 5936205-8 (Version None)
Quarter: 2008Q4

REPORT INFORMATION
  Report Type: 
  Country: None (occurrence: None)
  Receive Date: 20081030
  Receipt Date: 20081020
  Transmission Date: 20090506
  Serious: Yes (Death, Hospitalization, Other)
  Sender: FDA-Public Use
  Company Number: US-ALLERGAN-0810745US

PATIENT
  Sex: Female

DRUGS (7)
  1. BOTOX [Suspect]
     Indication: DYSTONIA
     Dosage: 195 UNITS, SINGLE
     Dates: start: 20080403, end: 20080403
  2. BOTOX [Suspect]
  3. TYLENOL (CAPLET) [Concomitant]
     Dosage: 2 DF, QHS
  4. FLEXERIL [Concomitant]
     Indication: MUSCLE RELAXANT THERAPY
     Dosage: 10 MG, QHS
  5. XALATAN [Concomitant]
     Indication: GLAUCOMA
     Dosage: UNK, QD
     Route: 047
  6. AZOPT [Concomitant]
     Indication: GLAUCOMA
  7. IBUPROFEN [Concomitant]
     Indication: PAIN
     Dosage: 200 MG, PRN

REACTIONS (6)
  - CARDIAC ARREST [None]
  - DYSPHAGIA [None]
  - DYSPNOEA [None]
  - PHARYNGEAL OEDEMA [None]
  - PNEUMONIA [None]
  - WEIGHT DECREASED [None]
